FAERS Safety Report 7435973-6 (Version None)
Quarter: 2011Q2

REPORT INFORMATION
  Report Type: 
  Country: None (occurrence: None)
  Receive Date: 20110418
  Receipt Date: 20110411
  Transmission Date: 20111010
  Serious: Yes (Death)
  Sender: FDA-Public Use
  Company Number: UTC-006300

PATIENT
  Age: 79 Year
  Sex: Female
  Weight: 50 kg

DRUGS (3)
  1. DIURETICS (DIURETICS) [Concomitant]
  2. TYVASO [Suspect]
     Indication: PULMONARY HYPERTENSION
     Dosage: 96 MCG (24 MCG,4 IN 1 D),INHALATION
     Route: 055
     Dates: start: 20110303
  3. REVATIO [Concomitant]

REACTIONS (1)
  - NO THERAPEUTIC RESPONSE [None]
